FAERS Safety Report 16418969 (Version 3)
Quarter: 2019Q2

REPORT INFORMATION
  Report Type: Spontaneous
  Country: JP (occurrence: JP)
  Receive Date: 20190612
  Receipt Date: 20190625
  Transmission Date: 20190711
  Serious: Yes (Other)
  Sender: FDA-Public Use
  Company Number: JP-SAKK-2019SA155267AA

PATIENT
  Age: 43 Year
  Sex: Female

DRUGS (5)
  1. XOLAIR [Concomitant]
     Active Substance: OMALIZUMAB
     Indication: FOOD ALLERGY
     Route: 058
  2. DUPIXENT [Suspect]
     Active Substance: DUPILUMAB
     Indication: ASTHMA
     Dosage: UNK
     Route: 058
     Dates: start: 20190530
  3. XOLAIR [Concomitant]
     Active Substance: OMALIZUMAB
     Indication: ALLERGIC GASTROENTERITIS
  4. DUPIXENT [Suspect]
     Active Substance: DUPILUMAB
     Indication: DERMATITIS ATOPIC
  5. DUPIXENT [Suspect]
     Active Substance: DUPILUMAB
     Indication: FOOD ALLERGY

REACTIONS (11)
  - Therapeutic product effect incomplete [Unknown]
  - Laryngeal oedema [Not Recovered/Not Resolved]
  - Dysphonia [Unknown]
  - Cough [Unknown]
  - Diarrhoea [Not Recovered/Not Resolved]
  - Gastrointestinal oedema [Unknown]
  - Vomiting [Not Recovered/Not Resolved]
  - Feeding disorder [Not Recovered/Not Resolved]
  - Hypersensitivity [Unknown]
  - Dyspnoea [Unknown]
  - Product use in unapproved indication [Unknown]

NARRATIVE: CASE EVENT DATE: 20190604
